FAERS Safety Report 19753848 (Version 1)
Quarter: 2021Q3

REPORT INFORMATION
  Report Type: Spontaneous
  Country: US (occurrence: US)
  Receive Date: 20210824
  Receipt Date: 20210824
  Transmission Date: 20211014
  Serious: No
  Sender: FDA-Public Use
  Company Number: None

PATIENT
  Age: 46 Year
  Sex: Female

DRUGS (3)
  1. TALTZ [Suspect]
     Active Substance: IXEKIZUMAB
     Indication: GUILLAIN-BARRE SYNDROME
     Dosage: INJECT 80MG (1 PEN) SUBCUTANEOUSLY EVERY 4 WEEKS  IN THE ABDOMEN, THIGH, OR UPPER ARM ROTATING INJECTION
     Route: 058
     Dates: start: 202105
  2. TALTZ [Suspect]
     Active Substance: IXEKIZUMAB
     Indication: SPINAL OSTEOARTHRITIS
     Dosage: INJECT 80MG (1 PEN) SUBCUTANEOUSLY EVERY 4 WEEKS  IN THE ABDOMEN, THIGH, OR UPPER ARM ROTATING INJECTION
     Route: 058
     Dates: start: 202105
  3. TALTZ [Suspect]
     Active Substance: IXEKIZUMAB
     Indication: ANKYLOSING SPONDYLITIS
     Dosage: INJECT 80MG (1 PEN) SUBCUTANEOUSLY EVERY 4 WEEKS  IN THE ABDOMEN, THIGH, OR UPPER ARM ROTATING INJECTION
     Route: 058
     Dates: start: 202105

REACTIONS (2)
  - COVID-19 [None]
  - Abdominal pain [None]
